FAERS Safety Report 7354437-1 (Version None)
Quarter: 2011Q1

REPORT INFORMATION
  Report Type: 
  Country: None (occurrence: None)
  Receive Date: 20110316
  Receipt Date: 20110304
  Transmission Date: 20110831
  Serious: Yes (Other)
  Sender: FDA-Public Use
  Company Number: CA-BAYER-2011-014861

PATIENT
  Sex: Female
  Weight: 81 kg

DRUGS (1)
  1. MIRENA [Suspect]
     Indication: CONTRACEPTION
     Dosage: 20 ?G/D, CONT
     Route: 015
     Dates: start: 20090801, end: 20110104

REACTIONS (6)
  - PREGNANCY WITH CONTRACEPTIVE DEVICE [None]
  - CAESAREAN SECTION [None]
  - UTERINE PERFORATION [None]
  - DRUG EXPOSURE DURING PREGNANCY [None]
  - DEVICE DISLOCATION [None]
  - PROCEDURAL PAIN [None]
